FAERS Safety Report 9700786 (Version 2)
Quarter: 2014Q1

REPORT INFORMATION
  Report Type: Spontaneous
  Country: US (occurrence: US)
  Receive Date: 20131121
  Receipt Date: 20140207
  Transmission Date: 20141002
  Serious: Yes (Other)
  Sender: FDA-Public Use
  Company Number: PHEH2013US024305

PATIENT
  Age: 68 Year
  Sex: Male
  Weight: 72.56 kg

DRUGS (2)
  1. ZOMETA [Suspect]
     Indication: PROSTATE CANCER
     Dosage: UNK UKN, UNK
  2. ZOMETA [Suspect]
     Indication: METASTASES TO BONE

REACTIONS (5)
  - Osteonecrosis of jaw [Recovering/Resolving]
  - Muscle abscess [Recovered/Resolved]
  - Exposed bone in jaw [Recovering/Resolving]
  - Pain in jaw [Unknown]
  - Aphagia [Unknown]
